FAERS Safety Report 5717552-1 (Version None)
Quarter: 2008Q2

REPORT INFORMATION
  Report Type: 
  Country: None (occurrence: None)
  Receive Date: 20080425
  Receipt Date: 20071129
  Transmission Date: 20081010
  Serious: Yes (Other)
  Sender: FDA-Public Use
  Company Number: AU-JNJFOC-20080406071

PATIENT
  Age: 52 Year
  Sex: Male

DRUGS (4)
  1. TRAMADOL HCL [Suspect]
     Indication: DRUG USE FOR UNKNOWN INDICATION
     Route: 065
  2. ARAVA [Suspect]
     Indication: RHEUMATOID ARTHRITIS
     Route: 048
  3. PANADEINE [Concomitant]
  4. DICLOFENAC POTASSIUM [Concomitant]

REACTIONS (2)
  - LUNG NEOPLASM [None]
  - PNEUMONIA [None]
